FAERS Safety Report 11522176 (Version 1)
Quarter: 2015Q3

REPORT INFORMATION
  Report Type: Spontaneous
  Country: BR (occurrence: BR)
  Receive Date: 20150918
  Receipt Date: 20150918
  Transmission Date: 20151125
  Serious: Yes (Death, Other)
  Sender: FDA-Public Use
  Company Number: BR-PFIZER INC-2015310340

PATIENT
  Age: 89 Year
  Sex: Male
  Weight: 87 kg

DRUGS (1)
  1. CELEBRA [Suspect]
     Active Substance: CELECOXIB
     Dosage: UNK
     Route: 048
     Dates: start: 1995

REACTIONS (3)
  - Multi-organ failure [Fatal]
  - Bedridden [Unknown]
  - Femur fracture [Unknown]
